FAERS Safety Report 21200080 (Version 1)
Quarter: 2022Q3

REPORT INFORMATION
  Report Type: Spontaneous
  Country: ZA (occurrence: ZA)
  Receive Date: 20220811
  Receipt Date: 20220811
  Transmission Date: 20221027
  Serious: Yes (Other)
  Sender: FDA-Public Use
  Company Number: ZA-PFIZER INC-PV202200039719

PATIENT
  Age: 48 Year
  Sex: Male
  Weight: 55 kg

DRUGS (1)
  1. XELJANZ [Suspect]
     Active Substance: TOFACITINIB CITRATE
     Dosage: 5 MG, 2X/DAY
     Route: 048

REACTIONS (4)
  - Uveitis [Unknown]
  - Alopecia [Unknown]
  - Blood creatine increased [Unknown]
  - Spinal pain [Unknown]
